FAERS Safety Report 4787441-8 (Version None)
Quarter: 2005Q3

REPORT INFORMATION
  Report Type: 
  Country: None (occurrence: None)
  Receive Date: 20050926
  Receipt Date: 20050720
  Transmission Date: 20060218
  Serious: No
  Sender: FDA-Public Use
  Company Number: 216309

PATIENT
  Sex: Female

DRUGS (3)
  1. AVASTIN [Suspect]
     Indication: BREAST CANCER METASTATIC
     Dosage: 10 MG/KG
     Dates: start: 20050601
  2. HERCEPTIN [Suspect]
     Indication: BREAST CANCER METASTATIC
  3. TAXOL [Concomitant]

REACTIONS (1)
  - PROTEINURIA [None]
